FAERS Safety Report 8105571-X (Version None)
Quarter: 2012Q1

REPORT INFORMATION
  Report Type: 
  Country: None (occurrence: None)
  Receive Date: 20120201
  Receipt Date: 20120126
  Transmission Date: 20120608
  Serious: Yes (Other)
  Sender: FDA-Public Use
  Company Number: US-ROCHE-734589

PATIENT
  Sex: Male
  Weight: 68 kg

DRUGS (3)
  1. ACCUTANE [Suspect]
     Route: 065
  2. ACCUTANE [Suspect]
     Indication: ACNE
     Route: 065
     Dates: start: 19991110, end: 20000401
  3. CLARITIN [Concomitant]
     Dosage: FREQUENCY: BID
     Route: 048

REACTIONS (10)
  - COLITIS ULCERATIVE [None]
  - RECTAL HAEMORRHAGE [None]
  - ANXIETY [None]
  - NAUSEA [None]
  - ABDOMINAL PAIN [None]
  - INFLAMMATORY BOWEL DISEASE [None]
  - INTESTINAL HAEMORRHAGE [None]
  - DEPRESSION [None]
  - LIP DRY [None]
  - RASH [None]
